FAERS Safety Report 7940987-3 (Version None)
Quarter: 2011Q4

REPORT INFORMATION
  Report Type: 
  Country: None (occurrence: None)
  Receive Date: 20111128
  Receipt Date: 20111118
  Transmission Date: 20120403
  Serious: Yes (Other)
  Sender: FDA-Public Use
  Company Number: FR-COVIDIEN/TYCO HEALTHCARE/MALLINCKRODT-T201102697

PATIENT
  Age: 1 Day

DRUGS (2)
  1. CODEINE SULFATE [Suspect]
     Dosage: VERY HIGH DOSES
  2. METHADOSE [Suspect]
     Dosage: UNK

REACTIONS (2)
  - MATERNAL EXPOSURE DURING PREGNANCY [None]
  - MULTIPLE CONGENITAL ABNORMALITIES [None]
